FAERS Safety Report 8516742-2 (Version None)
Quarter: 2012Q2

REPORT INFORMATION
  Report Type: 
  Country: None (occurrence: None)
  Receive Date: 20120406
  Receipt Date: 20101029
  Transmission Date: 20120825
  Serious: Yes (Hospitalization)
  Sender: FDA-Public Use
  Company Number: PHHY2010US70751

PATIENT
  Age: 57 Year
  Sex: Female

DRUGS (1)
  1. TASIGNA [Suspect]
     Indication: CHRONIC MYELOID LEUKAEMIA
     Dosage: 300 MG, BID, ORAL
     Route: 048
     Dates: start: 20101001

REACTIONS (6)
  - CHEST PAIN [None]
  - NAUSEA [None]
  - FLUSHING [None]
  - HEADACHE [None]
  - NASOPHARYNGITIS [None]
  - CHEST DISCOMFORT [None]
